FAERS Safety Report 10309259 (Version 6)
Quarter: 2015Q2

REPORT INFORMATION
  Report Type: Report from Study
  Country: US (occurrence: US)
  Receive Date: 20140716
  Receipt Date: 20150511
  Transmission Date: 20150821
  Serious: Yes (Hospitalization, Other)
  Sender: FDA-Public Use
  Company Number: US-BIOMARINAP-US-2014-103699

PATIENT
  Sex: Female

DRUGS (1)
  1. ALDURAZYME [Suspect]
     Active Substance: LARONIDASE
     Indication: MUCOPOLYSACCHARIDOSIS I
     Dosage: 23.2 MG, QW
     Route: 042
     Dates: start: 20030619

REACTIONS (10)
  - Stent placement [Unknown]
  - Tracheostomy [Not Recovered/Not Resolved]
  - Pain [Unknown]
  - Toothache [Unknown]
  - Cardiac valve disease [Not Recovered/Not Resolved]
  - Pneumonia [Unknown]
  - Heart rate decreased [Unknown]
  - Muscular weakness [Unknown]
  - Respiratory arrest [Unknown]
  - Muscle twitching [Unknown]
